FAERS Safety Report 8998394 (Version 6)
Quarter: 2013Q4

REPORT INFORMATION
  Report Type: Report from Study
  Country: JP (occurrence: JP)
  Receive Date: 20130103
  Receipt Date: 20131111
  Transmission Date: 20140711
  Serious: Yes (Other)
  Sender: FDA-Public Use
  Company Number: JP-ROCHE-1176224

PATIENT
  Age: 60 Year
  Sex: Male

DRUGS (6)
  1. ALTEPLASE [Suspect]
     Indication: ISCHAEMIC STROKE
     Route: 042
     Dates: start: 20080620, end: 20080620
  2. ALTEPLASE [Suspect]
     Indication: EMBOLIC STROKE
  3. WARFARIN POTASSIUM [Suspect]
     Indication: PRODUCT USED FOR UNKNOWN INDICATION
     Route: 048
  4. ASPIRIN [Suspect]
     Indication: PRODUCT USED FOR UNKNOWN INDICATION
     Route: 048
  5. BLOPRESS [Concomitant]
     Route: 048
  6. PERDIPINE [Concomitant]

REACTIONS (3)
  - Haemorrhage intracranial [Unknown]
  - Neurological decompensation [Unknown]
  - Haemorrhagic infarction [Recovered/Resolved with Sequelae]
